FAERS Safety Report 24658296 (Version 5)
Quarter: 2025Q1

REPORT INFORMATION
  Report Type: Spontaneous
  Country: JP (occurrence: JP)
  Receive Date: 20241125
  Receipt Date: 20250219
  Transmission Date: 20250409
  Serious: Yes (Hospitalization)
  Sender: ASTELLAS
  Company Number: JP-ASTELLAS-2024-AER-005380

PATIENT
  Age: 8 Decade
  Sex: Female

DRUGS (9)
  1. XOSPATA [Suspect]
     Active Substance: GILTERITINIB
     Indication: Acute myeloid leukaemia
     Route: 048
     Dates: start: 20240820, end: 202409
  2. XOSPATA [Suspect]
     Active Substance: GILTERITINIB
     Route: 065
     Dates: start: 20241029
  3. XOSPATA [Suspect]
     Active Substance: GILTERITINIB
     Route: 048
     Dates: start: 20250106
  4. VENCLEXTA [Concomitant]
     Active Substance: VENETOCLAX
     Indication: Product used for unknown indication
     Route: 065
  5. VENCLEXTA [Concomitant]
     Active Substance: VENETOCLAX
     Route: 065
  6. VENCLEXTA [Concomitant]
     Active Substance: VENETOCLAX
     Route: 065
  7. AZACITIDINE [Concomitant]
     Active Substance: AZACITIDINE
     Indication: Product used for unknown indication
     Route: 065
  8. AZACITIDINE [Concomitant]
     Active Substance: AZACITIDINE
     Route: 065
  9. AZACITIDINE [Concomitant]
     Active Substance: AZACITIDINE
     Route: 065

REACTIONS (1)
  - Liver disorder [Unknown]

NARRATIVE: CASE EVENT DATE: 20240902
